FAERS Safety Report 6902592-7 (Version None)
Quarter: 2010Q3

REPORT INFORMATION
  Report Type: 
  Country: None (occurrence: None)
  Receive Date: 20100803
  Receipt Date: 20080529
  Transmission Date: 20110219
  Serious: Yes (Other)
  Sender: FDA-Public Use
  Company Number: US-PFIZER INC-2008032824

PATIENT
  Sex: Female
  Weight: 103.4 kg

DRUGS (10)
  1. LYRICA [Suspect]
     Indication: FIBROMYALGIA
  2. FLUOXETINE [Concomitant]
  3. MONTELUKAST SODIUM [Concomitant]
  4. TRILEPTAL [Concomitant]
  5. CYCLOBENZAPRINE [Concomitant]
  6. AMBIEN [Concomitant]
  7. MUCINEX [Concomitant]
  8. DIPHENHYDRAMINE [Concomitant]
  9. HYDROCODONE BITARTRATE [Concomitant]
  10. NABUMETONE [Concomitant]

REACTIONS (4)
  - FEELING ABNORMAL [None]
  - HYPERSENSITIVITY [None]
  - PRURITUS [None]
  - URTICARIA [None]
